FAERS Safety Report 7917890-8 (Version None)
Quarter: 2011Q4

REPORT INFORMATION
  Report Type: 
  Country: None (occurrence: None)
  Receive Date: 20111116
  Receipt Date: 20111108
  Transmission Date: 20120403
  Serious: Yes (Hospitalization)
  Sender: FDA-Public Use
  Company Number: PHHY2011CA95735

PATIENT
  Sex: Male

DRUGS (1)
  1. ZOMETA [Suspect]
     Indication: METASTATIC RENAL CELL CARCINOMA
     Dosage: 4 MG, (EVERY 4 WEEKS)
     Route: 042
     Dates: start: 20110718

REACTIONS (2)
  - PNEUMONIA [None]
  - URINARY TRACT INFECTION [None]
